FAERS Safety Report 14894825 (Version 3)
Quarter: 2018Q3

REPORT INFORMATION
  Report Type: Report from Study
  Country: GB (occurrence: GB)
  Receive Date: 20180515
  Receipt Date: 20180709
  Transmission Date: 20181010
  Serious: Yes (Other)
  Sender: FDA-Public Use
  Company Number: GB-BRISTOL-MYERS SQUIBB COMPANY-BMS-2018-041424

PATIENT
  Age: 72 Year
  Sex: Female

DRUGS (1)
  1. ABATACEPT [Suspect]
     Active Substance: ABATACEPT
     Indication: RHEUMATOID ARTHRITIS
     Dosage: 125 MG, QWK
     Route: 058
     Dates: start: 20170815

REACTIONS (6)
  - Rash [Unknown]
  - Skin haemorrhage [Unknown]
  - Rheumatoid arthritis [Unknown]
  - Adverse event [Unknown]
  - Malaise [Unknown]
  - Groin infection [Unknown]

NARRATIVE: CASE EVENT DATE: 201804
